FAERS Safety Report 20387840 (Version 2)
Quarter: 2022Q1

REPORT INFORMATION
  Report Type: Spontaneous
  Country: US (occurrence: None)
  Receive Date: 20220128
  Receipt Date: 20220308
  Transmission Date: 20220423
  Serious: No
  Sender: FDA-Public Use
  Company Number: 2021A909702

PATIENT
  Age: 794 Month
  Sex: Female

DRUGS (1)
  1. BUDESONIDE\FORMOTEROL\GLYCOPYRRONIUM [Suspect]
     Active Substance: BUDESONIDE\FORMOTEROL\GLYCOPYRRONIUM
     Indication: Chronic obstructive pulmonary disease
     Dosage: 160MCG/9MCG/4.8MCG, 2 PUFFS TWICE A DAY
     Route: 055

REACTIONS (7)
  - Dysphonia [Not Recovered/Not Resolved]
  - Cough [Not Recovered/Not Resolved]
  - Device use issue [Not Recovered/Not Resolved]
  - Wrong technique in device usage process [Unknown]
  - Incorrect dose administered by device [Not Recovered/Not Resolved]
  - Device malfunction [Unknown]
  - Incorrect dose administered by device [Unknown]

NARRATIVE: CASE EVENT DATE: 20211201
